FAERS Safety Report 6505479-7 (Version None)
Quarter: 2009Q4

REPORT INFORMATION
  Report Type: 
  Country: None (occurrence: None)
  Receive Date: 20091218
  Receipt Date: 20091214
  Transmission Date: 20100525
  Serious: Yes (Other)
  Sender: FDA-Public Use
  Company Number: US-EISAI INC.-E2020-05745-SPO-US

PATIENT
  Age: 76 Year
  Sex: Female

DRUGS (1)
  1. ARICEPT [Suspect]
     Indication: DRUG USE FOR UNKNOWN INDICATION
     Dosage: UNKNOWN
     Route: 048

REACTIONS (1)
  - ANGLE CLOSURE GLAUCOMA [None]
